FAERS Safety Report 23750214 (Version 2)
Quarter: 2024Q2

REPORT INFORMATION
  Report Type: Spontaneous
  Country: US (occurrence: US)
  Receive Date: 20240417
  Receipt Date: 20240515
  Transmission Date: 20240716
  Serious: No
  Sender: FDA-Public Use
  Company Number: US-BIOVITRUM-2024-US-005711

PATIENT
  Sex: Male

DRUGS (2)
  1. VONJO [Suspect]
     Active Substance: PACRITINIB
     Indication: Myelodysplastic syndrome
     Dosage: 200 MG, TWICE DAILY
     Route: 048
     Dates: start: 20240325
  2. VONJO [Suspect]
     Active Substance: PACRITINIB
     Indication: Myelofibrosis

REACTIONS (5)
  - Laboratory test abnormal [Recovering/Resolving]
  - Red blood cell count decreased [Unknown]
  - Platelet count decreased [Unknown]
  - Drug ineffective [Unknown]
  - Asthenia [Unknown]
